FAERS Safety Report 4468128-8 (Version None)
Quarter: 2004Q4

REPORT INFORMATION
  Report Type: 
  Country: None (occurrence: None)
  Receive Date: 20041004
  Receipt Date: 20040920
  Transmission Date: 20050328
  Serious: Yes (Hospitalization, Other)
  Sender: FDA-Public Use
  Company Number: 2004069025

PATIENT
  Sex: Male

DRUGS (1)
  1. MARAX (TABS) (HYDROXYZINE HYDROCHLORIDE) [Suspect]
     Indication: BRONCHITIS
     Dosage: (1 IN 1 D), TRANSMAMMARY

REACTIONS (3)
  - BRONCHOSPASM [None]
  - DRUG EXPOSURE VIA BREAST MILK [None]
  - PNEUMONIA [None]
